FAERS Safety Report 5809735-7 (Version None)
Quarter: 2008Q3

REPORT INFORMATION
  Report Type: 
  Country: None (occurrence: None)
  Receive Date: 20080714
  Receipt Date: 20080714
  Transmission Date: 20090109
  Serious: Yes (Other)
  Sender: FDA-Public Use
  Company Number: None

PATIENT
  Age: 33 Year
  Sex: Female
  Weight: 81.6475 kg

DRUGS (1)
  1. CIPRO [Suspect]
     Dosage: BID PO
     Route: 048
     Dates: start: 20080510

REACTIONS (4)
  - ARTHRALGIA [None]
  - LIVER FUNCTION TEST ABNORMAL [None]
  - PAIN [None]
  - PAIN IN EXTREMITY [None]
